FAERS Safety Report 6540378-6 (Version None)
Quarter: 2010Q1

REPORT INFORMATION
  Report Type: 
  Country: None (occurrence: None)
  Receive Date: 20100115
  Receipt Date: 20100111
  Transmission Date: 20100710
  Serious: Yes (Other)
  Sender: FDA-Public Use
  Company Number: JP-B.I. PHARMACEUTICALS,INC./RIDGEFIELD-2010-DE-00098GD

PATIENT
  Age: 49 Year

DRUGS (5)
  1. NEVIRAPINE [Suspect]
     Indication: HIV INFECTION
     Dates: end: 20090101
  2. ABACAVIR [Suspect]
     Indication: HIV INFECTION
     Dates: end: 20090101
  3. LOPINAVIR AND RITONAVIR [Suspect]
     Indication: HIV INFECTION
     Dates: end: 20090101
  4. LOPINAVIR AND RITONAVIR [Suspect]
  5. RALTEGRAVIR [Suspect]
     Indication: HIV INFECTION
     Dates: start: 20090101

REACTIONS (5)
  - DIARRHOEA [None]
  - HAEMORRHAGE [None]
  - HEPATITIS [None]
  - PERITONITIS [None]
  - STOMATITIS [None]
